FAERS Safety Report 4745325-5 (Version None)
Quarter: 2005Q3

REPORT INFORMATION
  Report Type: 
  Country: None (occurrence: None)
  Receive Date: 20050812
  Receipt Date: 20050816
  Transmission Date: 20060218
  Serious: Yes (Hospitalization)
  Sender: FDA-Public Use
  Company Number: TPG2004A00198

PATIENT
  Age: 76 Year
  Sex: Female

DRUGS (2)
  1. ACTOS [Suspect]
     Indication: DIABETES MELLITUS NON-INSULIN-DEPENDENT
     Dosage: 30 MG (30 MCI, 1 IN 1 D), PER ORAL
     Route: 048
     Dates: start: 20030101, end: 20040506
  2. RANITIDINE [Concomitant]

REACTIONS (14)
  - ABDOMINAL PAIN UPPER [None]
  - ANOREXIA [None]
  - BACK PAIN [None]
  - CONDITION AGGRAVATED [None]
  - CYANOSIS [None]
  - DEPRESSION [None]
  - DRY MOUTH [None]
  - GLYCOSYLATED HAEMOGLOBIN INCREASED [None]
  - HEPATITIS [None]
  - JAUNDICE [None]
  - NAUSEA [None]
  - PULSE ABSENT [None]
  - THIRST [None]
  - VULVOVAGINAL MYCOTIC INFECTION [None]
